FAERS Safety Report 24771276 (Version 1)
Quarter: 2024Q4

REPORT INFORMATION
  Report Type: Report from Study
  Country: JP (occurrence: JP)
  Receive Date: 20241224
  Receipt Date: 20241224
  Transmission Date: 20250115
  Serious: Yes (Life-Threatening, Other)
  Sender: CSL BEHRING
  Company Number: JP-BEH-2024188671

PATIENT
  Age: 25 Year
  Sex: Female
  Weight: 42 kg

DRUGS (95)
  1. BERINERT [Suspect]
     Active Substance: HUMAN C1-ESTERASE INHIBITOR
     Indication: Hereditary angioedema
     Dosage: 2 VIAL
     Route: 058
     Dates: start: 20230901, end: 20231107
  2. BERINERT [Suspect]
     Active Substance: HUMAN C1-ESTERASE INHIBITOR
     Indication: Prophylaxis
     Dosage: 1 VIAL
     Route: 058
     Dates: start: 20231109, end: 20231110
  3. BERINERT [Suspect]
     Active Substance: HUMAN C1-ESTERASE INHIBITOR
     Indication: Vulvovaginal pain
     Dosage: 2 VIAL
     Route: 058
     Dates: start: 20231116
  4. BERINERT [Suspect]
     Active Substance: HUMAN C1-ESTERASE INHIBITOR
     Indication: Glossodynia
  5. BERINERT [Suspect]
     Active Substance: HUMAN C1-ESTERASE INHIBITOR
     Indication: Hereditary angioedema
     Dosage: 3 VIAL
     Route: 042
  6. BERINERT [Suspect]
     Active Substance: HUMAN C1-ESTERASE INHIBITOR
     Indication: Hereditary angioedema
     Dosage: 3 VIAL
     Route: 042
  7. BERINERT [Suspect]
     Active Substance: HUMAN C1-ESTERASE INHIBITOR
     Indication: Prophylaxis
  8. BERINERT [Suspect]
     Active Substance: HUMAN C1-ESTERASE INHIBITOR
     Indication: Prophylaxis
  9. BERINERT [Suspect]
     Active Substance: HUMAN C1-ESTERASE INHIBITOR
     Indication: Puncture site pain
  10. BERINERT [Suspect]
     Active Substance: HUMAN C1-ESTERASE INHIBITOR
     Indication: Puncture site pain
  11. BERINERT [Suspect]
     Active Substance: HUMAN C1-ESTERASE INHIBITOR
     Indication: Swollen tongue
  12. BERINERT [Suspect]
     Active Substance: HUMAN C1-ESTERASE INHIBITOR
     Indication: Swollen tongue
  13. BERINERT [Suspect]
     Active Substance: HUMAN C1-ESTERASE INHIBITOR
     Indication: Urinary retention
  14. BERINERT [Suspect]
     Active Substance: HUMAN C1-ESTERASE INHIBITOR
     Indication: Urinary retention
  15. BERINERT [Suspect]
     Active Substance: HUMAN C1-ESTERASE INHIBITOR
     Indication: Dysphonia
  16. BERINERT [Suspect]
     Active Substance: HUMAN C1-ESTERASE INHIBITOR
     Indication: Dysphonia
  17. BERINERT [Suspect]
     Active Substance: HUMAN C1-ESTERASE INHIBITOR
     Indication: Eyelid oedema
  18. BERINERT [Suspect]
     Active Substance: HUMAN C1-ESTERASE INHIBITOR
     Indication: Eyelid oedema
  19. BERINERT [Suspect]
     Active Substance: HUMAN C1-ESTERASE INHIBITOR
     Indication: Lip oedema
  20. BERINERT [Suspect]
     Active Substance: HUMAN C1-ESTERASE INHIBITOR
     Indication: Lip oedema
  21. BERINERT [Suspect]
     Active Substance: HUMAN C1-ESTERASE INHIBITOR
     Indication: Tongue oedema
  22. BERINERT [Suspect]
     Active Substance: HUMAN C1-ESTERASE INHIBITOR
     Indication: Tongue oedema
  23. BERINERT [Suspect]
     Active Substance: HUMAN C1-ESTERASE INHIBITOR
     Indication: Lip swelling
  24. BERINERT [Suspect]
     Active Substance: HUMAN C1-ESTERASE INHIBITOR
     Indication: Lip swelling
  25. BERINERT [Suspect]
     Active Substance: HUMAN C1-ESTERASE INHIBITOR
     Indication: Cough
  26. BERINERT [Suspect]
     Active Substance: HUMAN C1-ESTERASE INHIBITOR
     Indication: Cough
  27. BERINERT [Suspect]
     Active Substance: HUMAN C1-ESTERASE INHIBITOR
     Indication: Abdominal distension
  28. BERINERT [Suspect]
     Active Substance: HUMAN C1-ESTERASE INHIBITOR
     Indication: Abdominal distension
  29. BERINERT [Suspect]
     Active Substance: HUMAN C1-ESTERASE INHIBITOR
     Indication: Oropharyngeal pain
  30. BERINERT [Suspect]
     Active Substance: HUMAN C1-ESTERASE INHIBITOR
     Indication: Oropharyngeal pain
  31. BERINERT [Suspect]
     Active Substance: HUMAN C1-ESTERASE INHIBITOR
     Indication: Swelling of eyelid
  32. BERINERT [Suspect]
     Active Substance: HUMAN C1-ESTERASE INHIBITOR
     Indication: Swelling of eyelid
  33. BERINERT [Suspect]
     Active Substance: HUMAN C1-ESTERASE INHIBITOR
     Indication: Vulvovaginal pain
  34. BERINERT [Suspect]
     Active Substance: HUMAN C1-ESTERASE INHIBITOR
     Indication: Vulvovaginal pain
  35. BERINERT [Suspect]
     Active Substance: HUMAN C1-ESTERASE INHIBITOR
     Indication: Paraesthesia oral
  36. BERINERT [Suspect]
     Active Substance: HUMAN C1-ESTERASE INHIBITOR
     Indication: Paraesthesia oral
  37. BERINERT [Suspect]
     Active Substance: HUMAN C1-ESTERASE INHIBITOR
     Indication: Vulvovaginal swelling
  38. BERINERT [Suspect]
     Active Substance: HUMAN C1-ESTERASE INHIBITOR
     Indication: Vulvovaginal swelling
  39. BERINERT [Suspect]
     Active Substance: HUMAN C1-ESTERASE INHIBITOR
     Indication: Glossodynia
  40. BERINERT [Suspect]
     Active Substance: HUMAN C1-ESTERASE INHIBITOR
     Indication: Glossodynia
  41. FIRAZYR [Concomitant]
     Active Substance: ICATIBANT ACETATE
     Indication: Hereditary angioedema
     Dosage: 30 MG
     Route: 058
  42. FIRAZYR [Concomitant]
     Active Substance: ICATIBANT ACETATE
     Indication: Prophylaxis
  43. FIRAZYR [Concomitant]
     Active Substance: ICATIBANT ACETATE
     Indication: Hereditary angioedema
  44. FIRAZYR [Concomitant]
     Active Substance: ICATIBANT ACETATE
     Indication: Hereditary angioedema
  45. FIRAZYR [Concomitant]
     Active Substance: ICATIBANT ACETATE
     Indication: Puncture site pain
  46. FIRAZYR [Concomitant]
     Active Substance: ICATIBANT ACETATE
     Indication: Urinary retention
  47. FIRAZYR [Concomitant]
     Active Substance: ICATIBANT ACETATE
     Indication: Dysphonia
  48. FIRAZYR [Concomitant]
     Active Substance: ICATIBANT ACETATE
     Indication: Hereditary angioedema
  49. FIRAZYR [Concomitant]
     Active Substance: ICATIBANT ACETATE
     Indication: Hereditary angioedema
  50. FIRAZYR [Concomitant]
     Active Substance: ICATIBANT ACETATE
     Indication: Hereditary angioedema
  51. FIRAZYR [Concomitant]
     Active Substance: ICATIBANT ACETATE
     Indication: Hereditary angioedema
  52. FIRAZYR [Concomitant]
     Active Substance: ICATIBANT ACETATE
     Indication: Cough
  53. FIRAZYR [Concomitant]
     Active Substance: ICATIBANT ACETATE
     Indication: Hereditary angioedema
  54. FIRAZYR [Concomitant]
     Active Substance: ICATIBANT ACETATE
     Indication: Oropharyngeal pain
  55. FIRAZYR [Concomitant]
     Active Substance: ICATIBANT ACETATE
     Indication: Hereditary angioedema
  56. FIRAZYR [Concomitant]
     Active Substance: ICATIBANT ACETATE
     Indication: Vulvovaginal pain
  57. FIRAZYR [Concomitant]
     Active Substance: ICATIBANT ACETATE
     Indication: Glossodynia
  58. FIRAZYR [Concomitant]
     Active Substance: ICATIBANT ACETATE
     Indication: Paraesthesia oral
  59. FIRAZYR [Concomitant]
     Active Substance: ICATIBANT ACETATE
     Indication: Hereditary angioedema
  60. FIRAZYR [Concomitant]
     Active Substance: ICATIBANT ACETATE
     Indication: Glossodynia
  61. TRANEXAMIC ACID [Concomitant]
     Active Substance: TRANEXAMIC ACID
     Indication: Hereditary angioedema
     Dosage: 1500 MG
     Route: 048
  62. TRANEXAMIC ACID [Concomitant]
     Active Substance: TRANEXAMIC ACID
     Indication: Prophylaxis
  63. ORLADEYO [Concomitant]
     Active Substance: BEROTRALSTAT HYDROCHLORIDE
     Indication: Hereditary angioedema
     Dosage: 150 MG
     Route: 048
  64. ORLADEYO [Concomitant]
     Active Substance: BEROTRALSTAT HYDROCHLORIDE
     Indication: Prophylaxis
  65. TRANSAMIN [Concomitant]
     Active Substance: TRANEXAMIC ACID
     Indication: Hereditary angioedema
     Dosage: 1500 MG
     Route: 041
  66. TRANSAMIN [Concomitant]
     Active Substance: TRANEXAMIC ACID
     Indication: Prophylaxis
  67. TRANSAMIN [Concomitant]
     Active Substance: TRANEXAMIC ACID
     Indication: Puncture site pain
  68. TRANSAMIN [Concomitant]
     Active Substance: TRANEXAMIC ACID
     Indication: Hereditary angioedema
  69. TRANSAMIN [Concomitant]
     Active Substance: TRANEXAMIC ACID
     Indication: Urinary retention
  70. TRANSAMIN [Concomitant]
     Active Substance: TRANEXAMIC ACID
     Indication: Dysphonia
  71. TRANSAMIN [Concomitant]
     Active Substance: TRANEXAMIC ACID
     Indication: Hereditary angioedema
  72. TRANSAMIN [Concomitant]
     Active Substance: TRANEXAMIC ACID
     Indication: Hereditary angioedema
  73. TRANSAMIN [Concomitant]
     Active Substance: TRANEXAMIC ACID
     Indication: Hereditary angioedema
  74. TRANSAMIN [Concomitant]
     Active Substance: TRANEXAMIC ACID
     Indication: Hereditary angioedema
  75. TRANSAMIN [Concomitant]
     Active Substance: TRANEXAMIC ACID
     Indication: Cough
  76. TRANSAMIN [Concomitant]
     Active Substance: TRANEXAMIC ACID
     Indication: Hereditary angioedema
  77. TRANSAMIN [Concomitant]
     Active Substance: TRANEXAMIC ACID
     Indication: Oropharyngeal pain
  78. TRANSAMIN [Concomitant]
     Active Substance: TRANEXAMIC ACID
     Indication: Hereditary angioedema
  79. TRANSAMIN [Concomitant]
     Active Substance: TRANEXAMIC ACID
     Indication: Hereditary angioedema
  80. EPINEPHRINE [Concomitant]
     Active Substance: EPINEPHRINE
     Indication: Hereditary angioedema
     Dosage: 0.4 ML
     Route: 030
  81. EPINEPHRINE [Concomitant]
     Active Substance: EPINEPHRINE
     Indication: Prophylaxis
  82. EPINEPHRINE [Concomitant]
     Active Substance: EPINEPHRINE
     Indication: Puncture site pain
  83. EPINEPHRINE [Concomitant]
     Active Substance: EPINEPHRINE
     Indication: Hereditary angioedema
  84. EPINEPHRINE [Concomitant]
     Active Substance: EPINEPHRINE
     Indication: Urinary retention
  85. EPINEPHRINE [Concomitant]
     Active Substance: EPINEPHRINE
     Indication: Dysphonia
  86. EPINEPHRINE [Concomitant]
     Active Substance: EPINEPHRINE
     Indication: Hereditary angioedema
  87. EPINEPHRINE [Concomitant]
     Active Substance: EPINEPHRINE
     Indication: Hereditary angioedema
  88. EPINEPHRINE [Concomitant]
     Active Substance: EPINEPHRINE
     Indication: Hereditary angioedema
  89. EPINEPHRINE [Concomitant]
     Active Substance: EPINEPHRINE
     Indication: Hereditary angioedema
  90. EPINEPHRINE [Concomitant]
     Active Substance: EPINEPHRINE
     Indication: Cough
  91. EPINEPHRINE [Concomitant]
     Active Substance: EPINEPHRINE
     Indication: Hereditary angioedema
  92. EPINEPHRINE [Concomitant]
     Active Substance: EPINEPHRINE
     Indication: Oropharyngeal pain
  93. EPINEPHRINE [Concomitant]
     Active Substance: EPINEPHRINE
     Indication: Hereditary angioedema
  94. TAKHZYRO [Concomitant]
     Active Substance: LANADELUMAB-FLYO
     Indication: Hereditary angioedema
     Dosage: 300 MG
     Route: 058
     Dates: start: 20231109
  95. TAKHZYRO [Concomitant]
     Active Substance: LANADELUMAB-FLYO
     Indication: Prophylaxis

REACTIONS (49)
  - Puncture site pain [Recovered/Resolved]
  - Hereditary angioedema [Recovered/Resolved]
  - Dyspnoea [Recovered/Resolved]
  - Urinary retention [Recovered/Resolved]
  - Dysphonia [Recovered/Resolved]
  - Hereditary angioedema [Recovered/Resolved]
  - Hereditary angioedema [Recovered/Resolved]
  - Hereditary angioedema [Recovered/Resolved]
  - Hereditary angioedema [Recovered/Resolved]
  - Hereditary angioedema [Recovered/Resolved]
  - Hereditary angioedema [Recovered/Resolved]
  - Cough [Recovered/Resolved]
  - Hereditary angioedema [Recovered/Resolved]
  - Hereditary angioedema [Recovered/Resolved]
  - Hereditary angioedema [Recovered/Resolved]
  - Hereditary angioedema [Recovered/Resolved]
  - Hereditary angioedema [Recovered/Resolved]
  - Hereditary angioedema [Recovered/Resolved]
  - Hereditary angioedema [Recovered/Resolved]
  - Hereditary angioedema [Recovered/Resolved]
  - Cough [Recovered/Resolved]
  - Hereditary angioedema [Recovered/Resolved]
  - Hereditary angioedema [Recovered/Resolved]
  - Hereditary angioedema [Unknown]
  - Hereditary angioedema [Unknown]
  - Hereditary angioedema [Unknown]
  - Hereditary angioedema [Unknown]
  - Hereditary angioedema [Unknown]
  - Hereditary angioedema [Unknown]
  - Hereditary angioedema [Unknown]
  - Hereditary angioedema [Unknown]
  - Hereditary angioedema [Unknown]
  - Hereditary angioedema [Recovered/Resolved]
  - Hereditary angioedema [Recovered/Resolved]
  - Hereditary angioedema [Recovered/Resolved]
  - Hereditary angioedema [Recovered/Resolved]
  - Hereditary angioedema [Recovered/Resolved]
  - Hereditary angioedema [Recovered/Resolved]
  - Hereditary angioedema [Recovered/Resolved]
  - Hereditary angioedema [Recovered/Resolved]
  - Hereditary angioedema [Recovered/Resolved]
  - Hereditary angioedema [Recovered/Resolved]
  - Hereditary angioedema [Recovered/Resolved]
  - Gastroenteritis [Recovered/Resolved]
  - Dysphonia [Recovered/Resolved]
  - Cough [Recovered/Resolved]
  - Sciatica [Unknown]
  - Off label use [Unknown]
  - Off label use [Unknown]

NARRATIVE: CASE EVENT DATE: 20231001
